FAERS Safety Report 9553600 (Version 3)
Quarter: 2013Q4

REPORT INFORMATION
  Report Type: Spontaneous
  Country: US (occurrence: US)
  Receive Date: 20130925
  Receipt Date: 20131001
  Transmission Date: 20140711
  Serious: Yes (Hospitalization)
  Sender: FDA-Public Use
  Company Number: US-GILEAD-2013-0079888

PATIENT
  Sex: Male

DRUGS (1)
  1. COMPLERA [Suspect]
     Indication: HIV INFECTION
     Dosage: 525 MG, UNK
     Route: 065
     Dates: start: 20130613

REACTIONS (1)
  - Staring [Recovered/Resolved]
